FAERS Safety Report 24717674 (Version 2)
Quarter: 2024Q4

REPORT INFORMATION
  Report Type: Spontaneous
  Country: US (occurrence: US)
  Receive Date: 20241210
  Receipt Date: 20241231
  Transmission Date: 20250115
  Serious: No
  Sender: PFIZER
  Company Number: US-PFIZER INC-202400315735

PATIENT
  Age: 11 Year
  Sex: Male
  Weight: 34.014 kg

DRUGS (1)
  1. GENOTROPIN [Suspect]
     Active Substance: SOMATROPIN
     Indication: Growth hormone deficiency
     Dosage: 1MG INJECTION ONCE A DAY
     Dates: start: 2024

REACTIONS (2)
  - Drug dose omission by device [Unknown]
  - Device information output issue [Unknown]
